FAERS Safety Report 24378046 (Version 1)
Quarter: 2024Q3

REPORT INFORMATION
  Report Type: Spontaneous
  Country: JP (occurrence: JP)
  Receive Date: 20240930
  Receipt Date: 20240930
  Transmission Date: 20241017
  Serious: Yes (Death, Hospitalization, Other)
  Sender: Steriscience PTE
  Company Number: JP-STERISCIENCE B.V.-2024-ST-001493

PATIENT
  Sex: Male

DRUGS (6)
  1. PIPERACILLIN SODIUM\TAZOBACTAM SODIUM [Suspect]
     Active Substance: PIPERACILLIN SODIUM\TAZOBACTAM SODIUM
     Indication: Pneumonia
     Dosage: UNK
     Route: 065
  2. RIFAMPIN [Concomitant]
     Active Substance: RIFAMPIN
     Indication: Atypical mycobacterial infection
     Dosage: 450 MILLIGRAM, QD
     Route: 065
  3. CLARITHROMYCIN [Concomitant]
     Active Substance: CLARITHROMYCIN
     Indication: Atypical mycobacterial infection
     Dosage: 800 MILLIGRAM, QD
     Route: 065
  4. ETHAMBUTOL [Concomitant]
     Active Substance: ETHAMBUTOL HYDROCHLORIDE
     Indication: Atypical mycobacterial infection
     Dosage: 750 MILLIGRAM, QD
     Route: 065
  5. REMDESIVIR [Concomitant]
     Active Substance: REMDESIVIR
     Indication: COVID-19
     Dosage: 200 MILLIGRAM
     Route: 042
  6. REMDESIVIR [Concomitant]
     Active Substance: REMDESIVIR
     Dosage: 100 MILLIGRAM, QD
     Route: 042

REACTIONS (1)
  - Drug ineffective [Fatal]
